FAERS Safety Report 10275798 (Version 1)
Quarter: 2014Q3

REPORT INFORMATION
  Report Type: Spontaneous
  Country: US (occurrence: None)
  Receive Date: 20140701
  Receipt Date: 20140701
  Transmission Date: 20150326
  Serious: Yes (Hospitalization, Other)
  Sender: FDA-Public Use
  Company Number: KAD201406-000649

PATIENT
  Age: 64 Year
  Sex: Female

DRUGS (3)
  1. TELAPREVIR (TELAPREVIR) [Suspect]
     Active Substance: TELAPREVIR
     Indication: CHRONIC HEPATITIS C
  2. RIBAVIRIN. [Suspect]
     Active Substance: RIBAVIRIN
     Indication: CHRONIC HEPATITIS C
  3. PEGYLATED INTERFERON (PEGYLATED INTERFERON) [Suspect]
     Active Substance: PEGINTERFERON ALFA-2A OR PEGINTERFERON ALFA-2B
     Indication: CHRONIC HEPATITIS C

REACTIONS (10)
  - Hypotension [None]
  - Asthenia [None]
  - Haemolytic anaemia [None]
  - Chest discomfort [None]
  - Palpitations [None]
  - Tachycardia [None]
  - Bone marrow failure [None]
  - Fatigue [None]
  - Dyspnoea exertional [None]
  - Dizziness [None]
